FAERS Safety Report 18081882 (Version 3)
Quarter: 2020Q3

REPORT INFORMATION
  Report Type: Report from Study
  Country: US (occurrence: US)
  Receive Date: 20200728
  Receipt Date: 20200812
  Transmission Date: 20201103
  Serious: Yes (Hospitalization)
  Sender: FDA-Public Use
  Company Number: US-EISAI MEDICAL RESEARCH-EC-2020-077244

PATIENT
  Age: 57 Year
  Sex: Male

DRUGS (8)
  1. HYDROCORTISONE. [Concomitant]
     Active Substance: HYDROCORTISONE
  2. LENVIMA [Suspect]
     Active Substance: LENVATINIB
     Indication: RENAL CANCER
     Route: 048
     Dates: start: 202007, end: 2020
  3. AMOXICILLIN?CLAVULANAT [Concomitant]
     Dosage: 875?125MG
  4. AZITHROMYCIN ANHYDROUS. [Concomitant]
     Active Substance: AZITHROMYCIN ANHYDROUS
  5. LENVIMA [Suspect]
     Active Substance: LENVATINIB
     Route: 048
     Dates: start: 202007
  6. AFINITOR [Concomitant]
     Active Substance: EVEROLIMUS
  7. CHANTIX [Concomitant]
     Active Substance: VARENICLINE TARTRATE
  8. LENVIMA [Suspect]
     Active Substance: LENVATINIB
     Route: 048
     Dates: start: 202007, end: 202007

REACTIONS (4)
  - Confusional state [Unknown]
  - Illness [Unknown]
  - Seasonal allergy [Recovering/Resolving]
  - Abdominal pain [Unknown]

NARRATIVE: CASE EVENT DATE: 202007
